FAERS Safety Report 16903116 (Version 3)
Quarter: 2019Q4

REPORT INFORMATION
  Report Type: Spontaneous
  Country: DE (occurrence: DE)
  Receive Date: 20191010
  Receipt Date: 20191228
  Transmission Date: 20200122
  Serious: Yes (Life-Threatening, Hospitalization)
  Sender: FDA-Public Use
  Company Number: DE-DRREDDYS-GER/GER/19/0114924

PATIENT
  Age: 51 Year
  Sex: Female

DRUGS (7)
  1. BRIVARACETAM [Concomitant]
     Active Substance: BRIVARACETAM
     Indication: EPILEPSY
     Dosage: DAILY DOSE: 200 MG MILLGRAM(S) EVERY DAYS 2 SEPARATED DOSES
     Route: 048
  2. CLONAZEPAM. [Concomitant]
     Active Substance: CLONAZEPAM
     Indication: RAPID EYE MOVEMENT SLEEP BEHAVIOUR DISORDER
     Dosage: DAILY DOSE: 1 MG MILLGRAM(S) EVERY DAYS
     Route: 048
  3. ESCITALOPRAM [Concomitant]
     Active Substance: ESCITALOPRAM OXALATE
     Indication: DEPRESSION
     Dosage: DAILY DOSE: 20 MG MILLGRAM(S) EVERY DAYS
     Route: 048
  4. PROGESTERON [Concomitant]
     Active Substance: PROGESTERONE
     Indication: MENOPAUSE
     Dosage: DAILY DOSE: 400 MG MILLGRAM(S) EVERY DAYS
     Route: 048
  5. LAMOTRIGINE. [Suspect]
     Active Substance: LAMOTRIGINE
     Indication: EPILEPSY
     Dosage: DAILY DOSE: 200 MG MILLGRAM(S) EVERY DAYS 2 SEPARATED DOSES
     Route: 048
     Dates: start: 2016
  6. PERAMPANEL [Concomitant]
     Active Substance: PERAMPANEL
     Indication: EPILEPSY
     Dosage: DAILY DOSE: 12 MG MILLGRAM(S) EVERY DAYS
     Route: 048
  7. LEVOTHYROXINE SODIUM. [Concomitant]
     Active Substance: LEVOTHYROXINE SODIUM
     Indication: HYPOTHYROIDISM
     Dosage: DAILY DOSE: 88 MCG (MICROGRAM(S)) EVERY DAYS
     Route: 048

REACTIONS (1)
  - Ventricular extrasystoles [Recovered/Resolved]

NARRATIVE: CASE EVENT DATE: 20190808
